FAERS Safety Report 12789688 (Version 2)
Quarter: 2016Q4

REPORT INFORMATION
  Report Type: Spontaneous
  Country: US (occurrence: US)
  Receive Date: 20160928
  Receipt Date: 20161024
  Transmission Date: 20170207
  Serious: Yes (Death)
  Sender: FDA-Public Use
  Company Number: US-INSYS THERAPEUTICS, INC-INS201609-000526

PATIENT
  Age: 50 Year
  Sex: Male
  Weight: 98.42 kg

DRUGS (6)
  1. OXYCODONE [Concomitant]
     Active Substance: OXYCODONE
  2. NEURONTIN [Concomitant]
     Active Substance: GABAPENTIN
  3. MAXIN MR [Concomitant]
  4. MORPHINE [Concomitant]
     Active Substance: MORPHINE
  5. SUBSYS [Suspect]
     Active Substance: FENTANYL
     Indication: BREAKTHROUGH PAIN
     Route: 060
     Dates: start: 20150423
  6. MS CONTIN [Concomitant]
     Active Substance: MORPHINE SULFATE

REACTIONS (3)
  - Cardiac arrest [Fatal]
  - Renal failure [Fatal]
  - Hepatic failure [Fatal]

NARRATIVE: CASE EVENT DATE: 20160117
